FAERS Safety Report 8989346 (Version 1)
Quarter: 2012Q4

REPORT INFORMATION
  Report Type: 
  Country: US (occurrence: US)
  Receive Date: 20121228
  Receipt Date: 20121228
  Transmission Date: 20130627
  Serious: Yes (Death, Other)
  Sender: FDA-Public Use
  Company Number: US-BAYER-2011-036962

PATIENT
  Age: 60 Year
  Sex: Male
  Weight: 74.38 kg

DRUGS (2)
  1. NEXAVAR [Suspect]
     Indication: LIVER CARCINOMA
     Dosage: 200 mg, BID
     Route: 048
     Dates: start: 20110405
  2. NEXAVAR [Suspect]
     Indication: LIVER CARCINOMA
     Dosage: 200 mg, BID

REACTIONS (5)
  - Abasia [Unknown]
  - Blister [Unknown]
  - Erythema [Unknown]
  - Joint crepitation [Unknown]
  - Death [Fatal]
